FAERS Safety Report 24065824 (Version 2)
Quarter: 2025Q3

REPORT INFORMATION
  Report Type: Spontaneous
  Country: GB (occurrence: GB)
  Receive Date: 20240709
  Receipt Date: 20250707
  Transmission Date: 20251021
  Serious: Yes (Life-Threatening, Other)
  Sender: DR REDDYS
  Company Number: None

PATIENT
  Sex: Male
  Weight: 78 kg

DRUGS (1)
  1. FINASTERIDE [Suspect]
     Active Substance: FINASTERIDE
     Indication: Product used for unknown indication

REACTIONS (6)
  - Suicidal ideation [Not Recovered/Not Resolved]
  - Anhedonia [Not Recovered/Not Resolved]
  - Depression [Not Recovered/Not Resolved]
  - Muscle atrophy [Not Recovered/Not Resolved]
  - Muscle twitching [Not Recovered/Not Resolved]
  - Insomnia [Not Recovered/Not Resolved]
